FAERS Safety Report 8353657 (Version 3)
Quarter: 2012Q4

REPORT INFORMATION
  Report Type: 
  Country: US (occurrence: US)
  Receive Date: 20120125
  Receipt Date: 20120903
  Transmission Date: 20130627
  Serious: Yes (Other)
  Sender: FDA-Public Use
  Company Number: US-PFIZER INC-2012016472

PATIENT
  Age: 59 Year
  Sex: Female
  Weight: 83.45 kg

DRUGS (15)
  1. DILANTIN [Suspect]
     Indication: EPILEPSY
     Dosage: 100 mg, 2x/day
     Route: 048
     Dates: start: 1963, end: 201111
  2. DILANTIN [Suspect]
     Dosage: 50 mg, 2x/day
     Dates: start: 201111
  3. DILANTIN [Suspect]
     Dosage: 200 mg, 2x/day
     Route: 048
     Dates: end: 201208
  4. DILANTIN [Suspect]
     Indication: EPILEPSY
     Dosage: 100 mg, 2x/day
     Dates: start: 201208
  5. VISTARIL [Suspect]
     Indication: ANXIETY
     Dosage: 50 mg, as needed
  6. VISTARIL [Suspect]
     Dosage: UNK
  7. LEVOTHYROXINE SODIUM [Suspect]
     Indication: THYROID DISORDER
     Dosage: 25 ug, daily
  8. LEVOTHYROXINE SODIUM [Suspect]
     Dosage: UNK
  9. AMLODIPINE BESILATE [Suspect]
     Indication: HYPERTENSION
     Dosage: 10 mg, daily
  10. VITAMIN B12 [Suspect]
     Indication: BONE DISORDER
     Dosage: UNK
  11. PHENOBARBITONE [Concomitant]
     Indication: EPILEPSY
     Dosage: 60 mg, 2x/day
     Dates: start: 1963
  12. ALPRAZOLAM [Concomitant]
     Indication: ANXIETY
     Dosage: 25 mg, 2x/day
  13. VITAMIN D3 [Concomitant]
     Indication: BONE DISORDER
     Dosage: 10000 IU, weekly
     Route: 048
  14. FISH OIL [Concomitant]
     Dosage: UNK
  15. COLECALCIFEROL [Concomitant]
     Dosage: UNK

REACTIONS (10)
  - Choking [Unknown]
  - Convulsion [Unknown]
  - Hysterectomy [Unknown]
  - Dysphagia [Unknown]
  - Anxiety [Unknown]
  - Bladder disorder [Unknown]
  - Pollakiuria [Unknown]
  - Insomnia [Unknown]
  - Drug ineffective [Unknown]
  - Hypertension [Not Recovered/Not Resolved]
